FAERS Safety Report 11334053 (Version 1)
Quarter: 2015Q3

REPORT INFORMATION
  Report Type: Spontaneous
  Country: US (occurrence: US)
  Receive Date: 20150803
  Receipt Date: 20150803
  Transmission Date: 20151125
  Serious: No
  Sender: FDA-Public Use
  Company Number: US-SA-2015SA044168

PATIENT
  Sex: Female
  Weight: 72 kg

DRUGS (2)
  1. AMBIEN [Suspect]
     Active Substance: ZOLPIDEM TARTRATE
     Indication: INSOMNIA
     Route: 065
  2. LYRICA [Suspect]
     Active Substance: PREGABALIN
     Route: 065

REACTIONS (5)
  - Gait disturbance [Unknown]
  - Erythema [Unknown]
  - Insomnia [Unknown]
  - Hypersensitivity [Unknown]
  - Peripheral swelling [Unknown]
